FAERS Safety Report 21952807 (Version 1)
Quarter: 2023Q1

REPORT INFORMATION
  Report Type: Other
  Country: US (occurrence: None)
  Receive Date: 20230204
  Receipt Date: 20230204
  Transmission Date: 20230418
  Serious: Yes (Other)
  Sender: FDA-Public Use
  Company Number: US-ROCHE-3277186

PATIENT
  Age: 76 Year
  Sex: Female

DRUGS (2)
  1. XELODA [Suspect]
     Active Substance: CAPECITABINE
     Indication: Breast cancer metastatic
     Dosage: TAKE 2 TABLET(S) BY MOUTH TWICE A DAY FOR 7 DAYS ,WITH 7 DAYS OFF. REPEAT.
     Route: 048
  2. XELODA [Suspect]
     Active Substance: CAPECITABINE
     Indication: Breast cancer female

REACTIONS (4)
  - Neoplasm malignant [Unknown]
  - Pain [Unknown]
  - Malaise [Unknown]
  - Gait disturbance [Unknown]
